FAERS Safety Report 15863543 (Version 1)
Quarter: 2019Q1

REPORT INFORMATION
  Report Type: Spontaneous
  Country: US (occurrence: US)
  Receive Date: 20190124
  Receipt Date: 20190124
  Transmission Date: 20190417
  Serious: Yes (Hospitalization, Disabling)
  Sender: FDA-Public Use
  Company Number: US-JNJFOC-20190128049

PATIENT
  Age: 58 Year
  Sex: Female

DRUGS (1)
  1. INVOKANA [Suspect]
     Active Substance: CANAGLIFLOZIN
     Indication: TYPE 2 DIABETES MELLITUS
     Route: 048
     Dates: start: 20150508

REACTIONS (15)
  - Acute kidney injury [Recovering/Resolving]
  - Sepsis [Recovering/Resolving]
  - Tendon rupture [Unknown]
  - Postoperative wound infection [Unknown]
  - Wound dehiscence [Unknown]
  - Necrotising myositis [Unknown]
  - Diabetic ketoacidosis [Recovering/Resolving]
  - Diabetic foot infection [Unknown]
  - Urinary tract infection [Recovering/Resolving]
  - Injury [Recovering/Resolving]
  - Osteomyelitis [Unknown]
  - Diabetic foot [Unknown]
  - Abscess limb [Unknown]
  - Fasciitis [Unknown]
  - Leg amputation [Unknown]

NARRATIVE: CASE EVENT DATE: 201506
